FAERS Safety Report 16330294 (Version 4)
Quarter: 2021Q1

REPORT INFORMATION
  Report Type: Spontaneous
  Country: FR (occurrence: FR)
  Receive Date: 20190520
  Receipt Date: 20210129
  Transmission Date: 20210419
  Serious: Yes (Other)
  Sender: FDA-Public Use
  Company Number: FR-ASTELLAS-2019US020746

PATIENT
  Age: 68 Year
  Sex: Male

DRUGS (5)
  1. PROGRAF [Suspect]
     Active Substance: TACROLIMUS
     Indication: PROPHYLAXIS AGAINST TRANSPLANT REJECTION
     Dosage: 2 DF, TWICE DAILY (MORNING AND EVENING)
     Route: 048
     Dates: start: 201904
  2. PROGRAF [Suspect]
     Active Substance: TACROLIMUS
     Dosage: 2 MG, TWICE DAILY (MORNING AND EVENING)
     Route: 048
     Dates: start: 20190510
  3. PROGRAF [Suspect]
     Active Substance: TACROLIMUS
     Indication: PROPHYLAXIS AGAINST TRANSPLANT REJECTION
     Dosage: 1 DF, ONCE DAILY (EVENING)
     Route: 048
     Dates: start: 201904
  4. PROGRAF [Suspect]
     Active Substance: TACROLIMUS
     Dosage: 1 DF, ONCE DAILY (EVENING)
     Route: 048
     Dates: start: 20190711
  5. PROGRAF [Suspect]
     Active Substance: TACROLIMUS
     Dosage: 2 MG, TWICE DAILY (MORNING AND EVENING)
     Route: 048
     Dates: start: 20190711

REACTIONS (2)
  - Poor quality product administered [Unknown]
  - Immunosuppressant drug level increased [Not Recovered/Not Resolved]

NARRATIVE: CASE EVENT DATE: 201904
